FAERS Safety Report 13115117 (Version 2)
Quarter: 2017Q1

REPORT INFORMATION
  Report Type: Report from Study
  Country: FR (occurrence: FR)
  Receive Date: 20170113
  Receipt Date: 20170223
  Transmission Date: 20170428
  Serious: Yes (Other)
  Sender: FDA-Public Use
  Company Number: FR-CELGENEUS-FRA-2016128617

PATIENT

DRUGS (1)
  1. REVLIMID [Suspect]
     Active Substance: LENALIDOMIDE
     Indication: DIFFUSE LARGE B-CELL LYMPHOMA
     Dosage: 25 MILLIGRAM
     Route: 048

REACTIONS (14)
  - Neoplasm [Unknown]
  - Liver disorder [Unknown]
  - Infection [Unknown]
  - Skin reaction [Unknown]
  - Haematological malignancy [Unknown]
  - Rash [Unknown]
  - Thrombocytopenia [Unknown]
  - Embolism [Unknown]
  - Diarrhoea [Unknown]
  - Second primary malignancy [Unknown]
  - Cardiac disorder [Unknown]
  - Neutropenia [Unknown]
  - Constipation [Unknown]
  - Neuropathy peripheral [Unknown]
